FAERS Safety Report 22295892 (Version 1)
Quarter: 2023Q2

REPORT INFORMATION
  Report Type: Spontaneous
  Country: US (occurrence: None)
  Receive Date: 20230507
  Receipt Date: 20230507
  Transmission Date: 20230721
  Serious: Yes (Other)
  Sender: FDA-Public Use
  Company Number: None

PATIENT
  Age: 60 Year
  Sex: Female
  Weight: 67.5 kg

DRUGS (15)
  1. ENVARSUS XR [Suspect]
     Active Substance: TACROLIMUS
     Dosage: FREQUENCY : DAILY;?
     Route: 048
     Dates: start: 20211022, end: 20230423
  2. ENVARSUS XR [Suspect]
     Active Substance: TACROLIMUS
  3. TACROLIMUS [Suspect]
     Active Substance: TACROLIMUS
  4. MYCOPHENOLIC ACID [Concomitant]
     Active Substance: MYCOPHENOLIC ACID
  5. PREDNISONE [Concomitant]
     Active Substance: PREDNISONE
  6. SYNTHROID [Concomitant]
     Active Substance: LEVOTHYROXINE SODIUM
  7. PEPCID [Concomitant]
     Active Substance: FAMOTIDINE
  8. PRALUENT [Concomitant]
     Active Substance: ALIROCUMAB
  9. CRESTOR [Concomitant]
     Active Substance: ROSUVASTATIN CALCIUM
  10. METOPROLOL [Concomitant]
     Active Substance: METOPROLOL
  11. ASPIRIN [Concomitant]
     Active Substance: ASPIRIN
  12. ZOLEDRONIC ACID [Concomitant]
     Active Substance: ZOLEDRONIC ACID
  13. GENGRAF [Concomitant]
     Active Substance: CYCLOSPORINE
  14. VITAMIN B12 [Concomitant]
     Active Substance: CYANOCOBALAMIN
  15. VITAMIN D NOS [Concomitant]
     Active Substance: VITAMIN D NOS

REACTIONS (10)
  - Disturbance in attention [None]
  - Aphasia [None]
  - Memory impairment [None]
  - Diarrhoea [None]
  - Fatigue [None]
  - Cognitive disorder [None]
  - Amnesia [None]
  - Speech disorder [None]
  - Brief resolved unexplained event [None]
  - Emotional distress [None]

NARRATIVE: CASE EVENT DATE: 20221101
